FAERS Safety Report 16695365 (Version 3)
Quarter: 2019Q3

REPORT INFORMATION
  Report Type: Spontaneous
  Country: GB (occurrence: GB)
  Receive Date: 20190813
  Receipt Date: 20190827
  Transmission Date: 20191004
  Serious: Yes (Other)
  Sender: FDA-Public Use
  Company Number: GB-ROCHE-2371965

PATIENT
  Age: 79 Year
  Sex: Female

DRUGS (1)
  1. BONDRONAT [IBANDRONATE SODIUM] [Suspect]
     Active Substance: IBANDRONATE SODIUM
     Indication: PRODUCT USED FOR UNKNOWN INDICATION
     Route: 048

REACTIONS (6)
  - Pain [Unknown]
  - Product availability issue [Unknown]
  - Decubitus ulcer [Unknown]
  - Muscle rigidity [Unknown]
  - Therapy cessation [Unknown]
  - Bedridden [Unknown]
